FAERS Safety Report 10581974 (Version 1)
Quarter: 2014Q4

REPORT INFORMATION
  Report Type: Spontaneous
  Country: US (occurrence: US)
  Receive Date: 20141113
  Receipt Date: 20141113
  Transmission Date: 20150529
  Serious: Yes (Other)
  Sender: FDA-Public Use
  Company Number: US-TAKEDA-2014TUS011299

PATIENT
  Age: 51 Year
  Sex: Female

DRUGS (1)
  1. COLCHICINE. [Suspect]
     Active Substance: COLCHICINE
     Indication: BEHCET^S SYNDROME
     Dosage: UNK
     Route: 065
     Dates: start: 2007

REACTIONS (4)
  - Invasive ductal breast carcinoma [Unknown]
  - Product use issue [Unknown]
  - Metastases to liver [Unknown]
  - Metastases to central nervous system [Unknown]
